FAERS Safety Report 7996577-X (Version None)
Quarter: 2011Q4

REPORT INFORMATION
  Report Type: 
  Country: None (occurrence: None)
  Receive Date: 20111221
  Receipt Date: 20111213
  Transmission Date: 20120403
  Serious: Yes (Other)
  Sender: FDA-Public Use
  Company Number: US-BIOGENIDEC-2011BI045954

PATIENT
  Age: 45 Year
  Sex: Female

DRUGS (1)
  1. TYSABRI [Suspect]
     Indication: MULTIPLE SCLEROSIS
     Route: 042
     Dates: start: 20110624, end: 20111014

REACTIONS (5)
  - PROGRESSIVE MULTIFOCAL LEUKOENCEPHALOPATHY [None]
  - OPTIC ATROPHY [None]
  - ATAXIA [None]
  - DYSARTHRIA [None]
  - GAIT DISTURBANCE [None]
